FAERS Safety Report 7737492-6 (Version None)
Quarter: 2011Q3

REPORT INFORMATION
  Report Type: 
  Country: None (occurrence: None)
  Receive Date: 20110908
  Receipt Date: 20110704
  Transmission Date: 20111222
  Serious: Yes (Other)
  Sender: FDA-Public Use
  Company Number: IE-GLAXOSMITHKLINE-B0731817A

PATIENT
  Sex: Male

DRUGS (6)
  1. VOTRIENT [Suspect]
     Indication: RENAL CELL CARCINOMA
     Dosage: 800MG PER DAY
     Route: 048
     Dates: start: 20110607, end: 20110704
  2. ISTIN [Concomitant]
     Dosage: 5MG PER DAY
  3. LIPITOR [Concomitant]
  4. RAMIPRIL [Concomitant]
  5. PANTOPRAZOLE [Concomitant]
     Dosage: 40MG PER DAY
  6. DEXAMETHASONE [Concomitant]
     Dosage: 2MG PER DAY

REACTIONS (10)
  - HYPOAESTHESIA [None]
  - BLOOD PRESSURE INCREASED [None]
  - FATIGUE [None]
  - PERIPHERAL COLDNESS [None]
  - HEADACHE [None]
  - ABNORMAL SENSATION IN EYE [None]
  - FLANK PAIN [None]
  - NEUROPATHY PERIPHERAL [None]
  - VISION BLURRED [None]
  - MOUTH ULCERATION [None]
